FAERS Safety Report 19490441 (Version 2)
Quarter: 2021Q3

REPORT INFORMATION
  Report Type: Spontaneous
  Country: TR (occurrence: TR)
  Receive Date: 20210705
  Receipt Date: 20210722
  Transmission Date: 20211014
  Serious: Yes (Other)
  Sender: FDA-Public Use
  Company Number: TR-NOVOPROD-825781

PATIENT
  Age: 16 Year
  Sex: Male

DRUGS (2)
  1. NORDITROPIN [Suspect]
     Active Substance: SOMATROPIN
     Indication: GROWTH HORMONE DEFICIENCY
     Dosage: UNK
     Route: 058
     Dates: start: 201607, end: 2020
  2. DESMOPRESSIN [Concomitant]
     Active Substance: DESMOPRESSIN
     Indication: DIABETES INSIPIDUS

REACTIONS (1)
  - Brain neoplasm [Unknown]

NARRATIVE: CASE EVENT DATE: 2020
